FAERS Safety Report 5253935-4 (Version None)
Quarter: 2007Q1

REPORT INFORMATION
  Report Type: 
  Country: None (occurrence: None)
  Receive Date: 20070228
  Receipt Date: 20070228
  Transmission Date: 20070707
  Serious: No
  Sender: FDA-Public Use
  Company Number: None

PATIENT
  Sex: Female
  Weight: 61.8 kg

DRUGS (2)
  1. FLUOROURACIL [Suspect]
     Dosage: 3500 MG
  2. LEUCOVORIN CALCIUM [Suspect]
     Dosage: 231 MG

REACTIONS (3)
  - ABDOMINAL PAIN [None]
  - NEUTROPHIL COUNT ABNORMAL [None]
  - WHITE BLOOD CELL COUNT ABNORMAL [None]
